FAERS Safety Report 25919232 (Version 1)
Quarter: 2025Q4

REPORT INFORMATION
  Report Type: Spontaneous
  Country: EU (occurrence: EU)
  Receive Date: 20251014
  Receipt Date: 20251014
  Transmission Date: 20260117
  Serious: Yes (Hospitalization)
  Sender: ROCHE
  Company Number: None

PATIENT
  Age: 45 Year
  Sex: Female

DRUGS (1)
  1. OCREVUS [Suspect]
     Active Substance: OCRELIZUMAB
     Indication: Relapsing-remitting multiple sclerosis
     Dosage: 600 MG EVERY 6 MONTHS?300 MG CONCENTRATE FOR INFUSION SOLUTION, 1 VIAL OF 10 ML
     Route: 042
     Dates: start: 20191212, end: 20240306

REACTIONS (2)
  - Acute disseminated encephalomyelitis [Recovering/Resolving]
  - Central nervous system enteroviral infection [Recovered/Resolved]

NARRATIVE: CASE EVENT DATE: 20240614
